FAERS Safety Report 17454738 (Version 1)
Quarter: 2020Q1

REPORT INFORMATION
  Report Type: Spontaneous
  Country: US (occurrence: US)
  Receive Date: 20200211
  Receipt Date: 20200211
  Transmission Date: 20200409
  Serious: No
  Sender: FDA-Public Use
  Company Number: None

PATIENT
  Age: 15 Year
  Sex: Male

DRUGS (1)
  1. NORDITROPIN [Suspect]
     Active Substance: SOMATROPIN
     Dosage: ?          OTHER STRENGTH:10MG/1.5ML;OTHER DOSE:1;?
     Route: 058

REACTIONS (1)
  - Product storage error [None]

NARRATIVE: CASE EVENT DATE: 20200211
